FAERS Safety Report 9662940 (Version 1)
Quarter: 2013Q4

REPORT INFORMATION
  Report Type: Spontaneous
  Country: US (occurrence: US)
  Receive Date: 20131031
  Receipt Date: 20131031
  Transmission Date: 20140711
  Serious: No
  Sender: FDA-Public Use
  Company Number: US-PURDUE-USA-2011-0076032

PATIENT
  Age: 88 Year
  Sex: Female

DRUGS (2)
  1. OXYCONTIN (NDA 22-272) [Suspect]
     Indication: PAIN
     Dosage: 80 MG, DAILY
     Route: 048
     Dates: start: 201103
  2. PREVACID FDT [Concomitant]
     Indication: ABDOMINAL PAIN UPPER
     Dosage: UNK, BID
     Route: 048

REACTIONS (1)
  - Abdominal pain upper [Unknown]
